FAERS Safety Report 8296668-2 (Version None)
Quarter: 2012Q2

REPORT INFORMATION
  Report Type: 
  Country: None (occurrence: None)
  Receive Date: 20120418
  Receipt Date: 20120418
  Transmission Date: 20120825
  Serious: Yes (Other)
  Sender: FDA-Public Use
  Company Number: None

PATIENT
  Age: 64 Year
  Sex: Female
  Weight: 90.718 kg

DRUGS (7)
  1. OXYCONTIN [Suspect]
     Indication: FIBROMYALGIA
     Dosage: 80
     Route: 048
     Dates: start: 20120331, end: 20120417
  2. OXYCONTIN [Suspect]
     Indication: ARTHRITIS
     Dosage: 80
     Route: 048
     Dates: start: 20120331, end: 20120417
  3. OXYCONTIN [Suspect]
     Indication: INTERVERTEBRAL DISC DEGENERATION
     Dosage: 80
     Route: 048
     Dates: start: 20120331, end: 20120417
  4. OXYCONTIN [Suspect]
     Indication: OSTEOARTHRITIS
     Dosage: 80
     Route: 048
     Dates: start: 20120331, end: 20120417
  5. OPANA ER [Concomitant]
     Indication: ARTHRALGIA
     Dosage: 30
     Route: 048
     Dates: start: 20120415, end: 20120417
  6. OPANA ER [Concomitant]
     Indication: NEURALGIA
     Dosage: 30
     Route: 048
     Dates: start: 20120415, end: 20120417
  7. OPANA ER [Concomitant]
     Indication: LYME DISEASE
     Dosage: 30
     Route: 048
     Dates: start: 20120415, end: 20120417

REACTIONS (5)
  - DRUG INEFFECTIVE [None]
  - PRODUCT FORMULATION ISSUE [None]
  - OEDEMA PERIPHERAL [None]
  - GAIT DISTURBANCE [None]
  - DRUG WITHDRAWAL SYNDROME [None]
